FAERS Safety Report 8048185-2 (Version None)
Quarter: 2012Q1

REPORT INFORMATION
  Report Type: 
  Country: None (occurrence: None)
  Receive Date: 20120113
  Receipt Date: 20120113
  Transmission Date: 20120608
  Serious: Yes (Hospitalization)
  Sender: FDA-Public Use
  Company Number: None

PATIENT
  Age: 52 Year
  Sex: Female
  Weight: 82 kg

DRUGS (13)
  1. OXYCODONE HCL [Concomitant]
  2. COMPAZINE [Concomitant]
  3. BEVACIZUMAB [Concomitant]
  4. ABRAXANE [Suspect]
     Indication: BREAST CANCER
     Dosage: 185 MG; WEEKLY; IV
     Route: 042
     Dates: start: 20111012, end: 20120104
  5. HYDROCHLOROTHIAZIDE [Concomitant]
  6. PRILOSEC [Concomitant]
  7. CARBOPLATIN [Suspect]
     Indication: BREAST CANCER
     Dosage: 170MG; WEEKLY; IV
     Route: 042
     Dates: start: 20111012, end: 20120104
  8. LISINOPRIL [Concomitant]
  9. METFORMIN HCL [Concomitant]
  10. ONDANSETRON [Concomitant]
  11. ATIVAN [Concomitant]
  12. DECADRON [Concomitant]
  13. IMODIUM [Concomitant]

REACTIONS (8)
  - NAUSEA [None]
  - VOMITING [None]
  - CHILLS [None]
  - THROMBOCYTOPENIA [None]
  - LEUKOPENIA [None]
  - FATIGUE [None]
  - DEHYDRATION [None]
  - DECREASED APPETITE [None]
